FAERS Safety Report 9223559 (Version 1)
Quarter: 2013Q2

REPORT INFORMATION
  Report Type: Spontaneous
  Country: US (occurrence: US)
  Receive Date: 20130409
  Receipt Date: 20130409
  Transmission Date: 20140414
  Serious: Yes (Other)
  Sender: FDA-Public Use
  Company Number: US-RB-052260-13

PATIENT
  Age: 60 Year
  Sex: Female

DRUGS (2)
  1. DELSYM CHILDREN^S COUGH SYRUP [Suspect]
     Indication: NASOPHARYNGITIS
     Route: 048
     Dates: start: 20130320
  2. DELSYM CHILDREN^S COUGH SYRUP [Suspect]
     Indication: UPPER RESPIRATORY TRACT CONGESTION
     Route: 048
     Dates: start: 201303

REACTIONS (5)
  - Blood pressure increased [Recovered/Resolved]
  - Mydriasis [Recovered/Resolved]
  - Dizziness [Recovered/Resolved]
  - Inappropriate schedule of drug administration [Recovered/Resolved]
  - Off label use [Recovered/Resolved]
